FAERS Safety Report 25539178 (Version 1)
Quarter: 2025Q3

REPORT INFORMATION
  Report Type: Spontaneous
  Country: EU (occurrence: EU)
  Receive Date: 20250710
  Receipt Date: 20250710
  Transmission Date: 20251021
  Serious: Yes (Other)
  Sender: PFIZER
  Company Number: EU-TAKEDA-2025TUS061599

PATIENT
  Age: 52 Year
  Sex: Female

DRUGS (6)
  1. BRENTUXIMAB VEDOTIN [Suspect]
     Active Substance: BRENTUXIMAB VEDOTIN
  2. DEXAMETHASONE [Suspect]
     Active Substance: DEXAMETHASONE
  3. ETOPOSIDE [Suspect]
     Active Substance: ETOPOSIDE
  4. CYCLOPHOSPHAMIDE [Suspect]
     Active Substance: CYCLOPHOSPHAMIDE
  5. DOXORUBICIN [Suspect]
     Active Substance: DOXORUBICIN
  6. DACARBAZINE [Suspect]
     Active Substance: DACARBAZINE

REACTIONS (2)
  - Leukopenia [Unknown]
  - Febrile neutropenia [Unknown]
